FAERS Safety Report 12455032 (Version 3)
Quarter: 2016Q3

REPORT INFORMATION
  Report Type: Spontaneous
  Country: US (occurrence: US)
  Receive Date: 20160610
  Receipt Date: 20160902
  Transmission Date: 20161109
  Serious: No
  Sender: FDA-Public Use
  Company Number: US-PFIZER INC-2016293345

PATIENT
  Age: 88 Year
  Sex: Female

DRUGS (1)
  1. XELJANZ [Suspect]
     Active Substance: TOFACITINIB CITRATE
     Indication: HERPES ZOSTER
     Dosage: 5 MG, UNK

REACTIONS (3)
  - Rash [Unknown]
  - Skin disorder [Unknown]
  - Product use issue [Unknown]
